FAERS Safety Report 7215201-7 (Version None)
Quarter: 2011Q1

REPORT INFORMATION
  Report Type: 
  Country: None (occurrence: None)
  Receive Date: 20110107
  Receipt Date: 20101025
  Transmission Date: 20110831
  Serious: No
  Sender: FDA-Public Use
  Company Number: A0888636A

PATIENT
  Age: 54 Year
  Sex: Female

DRUGS (2)
  1. INSULIN [Concomitant]
  2. LOVAZA [Suspect]
     Dosage: 2G PER DAY
     Route: 048

REACTIONS (1)
  - PRURITUS [None]
